FAERS Safety Report 7521424-X (Version None)
Quarter: 2011Q2

REPORT INFORMATION
  Report Type: 
  Country: None (occurrence: None)
  Receive Date: 20110603
  Receipt Date: 20110524
  Transmission Date: 20111010
  Serious: No
  Sender: FDA-Public Use
  Company Number: GB-JNJFOC-20110511827

PATIENT
  Sex: Male

DRUGS (1)
  1. DURAGESIC-100 [Suspect]
     Indication: PROCEDURAL PAIN
     Route: 062

REACTIONS (5)
  - DISTURBANCE IN ATTENTION [None]
  - OFF LABEL USE [None]
  - DRUG DOSE OMISSION [None]
  - DIZZINESS [None]
  - WITHDRAWAL SYNDROME [None]
